FAERS Safety Report 9874217 (Version 1)
Quarter: 2014Q1

REPORT INFORMATION
  Report Type: Spontaneous
  Country: US (occurrence: US)
  Receive Date: 20140206
  Receipt Date: 20140206
  Transmission Date: 20141002
  Serious: No
  Sender: FDA-Public Use
  Company Number: US-ACORDA-ACO_35204_2013

PATIENT
  Age: 50 Year
  Sex: Female
  Weight: 83.9 kg

DRUGS (2)
  1. AMPYRA [Suspect]
     Indication: GAIT DISTURBANCE
     Dosage: 10 MG, BID
     Route: 048
     Dates: start: 2010, end: 201301
  2. AMPYRA [Suspect]
     Dosage: 10 MG, QD
     Route: 048
     Dates: start: 201301

REACTIONS (3)
  - Chromaturia [Recovered/Resolved]
  - Muscle spasms [Recovering/Resolving]
  - Gait disturbance [Not Recovered/Not Resolved]
